FAERS Safety Report 14431466 (Version 3)
Quarter: 2018Q4

REPORT INFORMATION
  Report Type: Report from Study
  Country: CN (occurrence: CN)
  Receive Date: 20180124
  Receipt Date: 20181022
  Transmission Date: 20190204
  Serious: Yes (Other)
  Sender: FDA-Public Use
  Company Number: CN-ROCHE-2061959

PATIENT
  Sex: Male
  Weight: 54 kg

DRUGS (1)
  1. AVASTIN [Suspect]
     Active Substance: BEVACIZUMAB
     Indication: COLORECTAL CANCER
     Route: 041
     Dates: start: 20170903

REACTIONS (6)
  - Jaundice [Unknown]
  - Unevaluable event [Unknown]
  - Hepatic function abnormal [Unknown]
  - Asthenia [Unknown]
  - Marasmus [Unknown]
  - Intestinal obstruction [Unknown]
